FAERS Safety Report 8920170 (Version 2)
Quarter: 2012Q4

REPORT INFORMATION
  Report Type: Report from Study
  Country: BR (occurrence: BR)
  Receive Date: 20121122
  Receipt Date: 20121207
  Transmission Date: 20130627
  Serious: Yes (Hospitalization)
  Sender: FDA-Public Use
  Company Number: BR-ROCHE-1154700

PATIENT
  Age: 78 Year
  Sex: Female
  Weight: 47 kg

DRUGS (14)
  1. RITUXIMAB [Suspect]
     Indication: PRODUCT USED FOR UNKNOWN INDICATION
     Route: 065
     Dates: start: 20120201, end: 20120404
  2. METFORMIN [Concomitant]
     Route: 065
  3. PLAVIX [Concomitant]
  4. SELOZOK [Concomitant]
     Route: 065
  5. LOSARTAN [Concomitant]
     Route: 065
  6. VYTORIN [Concomitant]
  7. FLUIMUCIL (BRAZIL) [Concomitant]
  8. SPIRIVA [Concomitant]
  9. BENADRYL [Concomitant]
     Indication: PREMEDICATION
  10. CLOPIDOGREL BISULFATE [Concomitant]
     Route: 065
  11. CALTRATE [Concomitant]
     Route: 065
  12. ASPIRIN [Concomitant]
  13. ENDOFOLIN [Concomitant]
     Route: 065
  14. CRESTOR [Concomitant]
     Route: 065

REACTIONS (1)
  - Arthropathy [Recovered/Resolved]
